FAERS Safety Report 24625856 (Version 2)
Quarter: 2025Q3

REPORT INFORMATION
  Report Type: Spontaneous
  Country: US (occurrence: US)
  Receive Date: 20241115
  Receipt Date: 20250808
  Transmission Date: 20251020
  Serious: No
  Sender: ANI
  Company Number: US-ANIPHARMA-2024-US-053454

PATIENT
  Age: 65 Year
  Sex: Female

DRUGS (19)
  1. CORTICOTROPIN [Suspect]
     Active Substance: CORTICOTROPIN
     Indication: Sarcoidosis
     Route: 058
  2. VITAMIN D2 [Concomitant]
     Active Substance: ERGOCALCIFEROL
  3. NITROGLYCERIN [Concomitant]
     Active Substance: NITROGLYCERIN
  4. LORAZEPAM [Concomitant]
     Active Substance: LORAZEPAM
  5. FOLIC ACID [Concomitant]
     Active Substance: FOLIC ACID
  6. B12 [Concomitant]
  7. IRON [Concomitant]
     Active Substance: IRON
  8. FENOFIBRATE [Concomitant]
     Active Substance: FENOFIBRATE
  9. PROMACTA [Concomitant]
     Active Substance: ELTROMBOPAG OLAMINE
  10. SOLU-MEDROL [Concomitant]
     Active Substance: METHYLPREDNISOLONE SODIUM SUCCINATE
  11. PREDNISONE [Suspect]
     Active Substance: PREDNISONE
  12. RANEXA [Concomitant]
     Active Substance: RANOLAZINE
  13. VENLAFAXINE HCL [Concomitant]
     Active Substance: VENLAFAXINE HYDROCHLORIDE
  14. TRELEGY ELLIPTA [Concomitant]
     Active Substance: FLUTICASONE FUROATE\UMECLIDINIUM BROMIDE\VILANTEROL TRIFENATATE
  15. DILTIAZEM HYDROCHLORIDE [Concomitant]
     Active Substance: DILTIAZEM HYDROCHLORIDE
  16. METOPROLOL SUCCINATE [Concomitant]
     Active Substance: METOPROLOL SUCCINATE
  17. PANTOPRAZOLE SODIUM [Concomitant]
     Active Substance: PANTOPRAZOLE SODIUM
  18. METHOCARBAMOL [Concomitant]
     Active Substance: METHOCARBAMOL
  19. MONTELUKAST SODIUM [Concomitant]
     Active Substance: MONTELUKAST SODIUM

REACTIONS (4)
  - Anxiety [Unknown]
  - Depression [Unknown]
  - Product dose omission issue [Recovered/Resolved]
  - Palpitations [Unknown]
